FAERS Safety Report 5065989-9 (Version None)
Quarter: 2006Q3

REPORT INFORMATION
  Report Type: 
  Country: None (occurrence: None)
  Receive Date: 20060731
  Receipt Date: 20060731
  Transmission Date: 20061208
  Serious: Yes (Hospitalization)
  Sender: FDA-Public Use
  Company Number: None

PATIENT
  Age: 54 Year
  Sex: Female
  Weight: 87.0906 kg

DRUGS (4)
  1. CETACAINE [Suspect]
     Indication: CATHETERISATION CARDIAC
  2. LIDOCAINE HCL VISCOUS [Suspect]
  3. VERSED [Concomitant]
  4. FENTANYL [Suspect]

REACTIONS (4)
  - BURNING SENSATION [None]
  - PRURITUS [None]
  - RASH ERYTHEMATOUS [None]
  - URTICARIA [None]
